FAERS Safety Report 25361314 (Version 3)
Quarter: 2025Q2

REPORT INFORMATION
  Report Type: Report from Study
  Country: US (occurrence: US)
  Receive Date: 20250527
  Receipt Date: 20250605
  Transmission Date: 20250717
  Serious: Yes (Death, Other)
  Sender: GLAXOSMITHKLINE
  Company Number: US-GSK-US2025064704

PATIENT

DRUGS (3)
  1. DOSTARLIMAB [Suspect]
     Active Substance: DOSTARLIMAB
     Indication: Endometriosis
     Route: 042
     Dates: start: 20250124, end: 202503
  2. PACLITAXEL [Concomitant]
     Active Substance: PACLITAXEL
     Indication: Endometritis
     Dates: start: 20250104, end: 202503
  3. CARBOPLATIN [Concomitant]
     Active Substance: CARBOPLATIN
     Indication: Endometriosis
     Dates: start: 20250104, end: 202503

REACTIONS (2)
  - Sudden death [Fatal]
  - Product use in unapproved indication [Unknown]

NARRATIVE: CASE EVENT DATE: 20250124
